FAERS Safety Report 6824931-8 (Version None)
Quarter: 2010Q3

REPORT INFORMATION
  Report Type: 
  Country: None (occurrence: None)
  Receive Date: 20100708
  Receipt Date: 20061230
  Transmission Date: 20110219
  Serious: No
  Sender: FDA-Public Use
  Company Number: US-PFIZER INC-2007001693

PATIENT
  Age: 58 Year
  Sex: Male
  Weight: 70.31 kg

DRUGS (2)
  1. CHANTIX [Suspect]
     Indication: SMOKING CESSATION THERAPY
     Dates: start: 20061228
  2. VYTORIN [Concomitant]

REACTIONS (1)
  - ABDOMINAL PAIN UPPER [None]
